FAERS Safety Report 17681420 (Version 1)
Quarter: 2020Q2

REPORT INFORMATION
  Report Type: Report from Study
  Country: IE (occurrence: IE)
  Receive Date: 20200417
  Receipt Date: 20200417
  Transmission Date: 20200714
  Serious: Yes (Other)
  Sender: FDA-Public Use
  Company Number: IE-JNJFOC-20200401395

PATIENT
  Age: 70 Year
  Sex: Male

DRUGS (6)
  1. STELARA [Suspect]
     Active Substance: USTEKINUMAB
     Indication: TEMPORAL ARTERITIS
     Dosage: ADMINISTERED 21-JAN-2020
     Route: 058
     Dates: start: 20160411
  2. METHOTREXATE. [Concomitant]
     Active Substance: METHOTREXATE
     Route: 050
  3. ASPIRIN                            /00002701/ [Concomitant]
     Active Substance: ASPIRIN
     Route: 050
  4. FOLIC ACID. [Concomitant]
     Active Substance: FOLIC ACID
     Route: 050
  5. PANTUP [Concomitant]
     Active Substance: PANTOPRAZOLE SODIUM
     Route: 050
  6. PREDNISOLONE. [Concomitant]
     Active Substance: PREDNISOLONE
     Route: 050

REACTIONS (4)
  - Product use in unapproved indication [Unknown]
  - Pain [Not Recovered/Not Resolved]
  - Lower respiratory tract infection [Recovered/Resolved]
  - Off label use [Unknown]

NARRATIVE: CASE EVENT DATE: 20160411
